FAERS Safety Report 24092020 (Version 2)
Quarter: 2024Q3

REPORT INFORMATION
  Report Type: Spontaneous
  Country: MA (occurrence: MA)
  Receive Date: 20240715
  Receipt Date: 20240805
  Transmission Date: 20241017
  Serious: Yes (Other)
  Sender: BOEHRINGER INGELHEIM
  Company Number: MA-BoehringerIngelheim-2024-BI-039596

PATIENT
  Age: 79 Year

DRUGS (1)
  1. PRADAXA [Suspect]
     Active Substance: DABIGATRAN ETEXILATE MESYLATE
     Indication: Atrial fibrillation
     Dates: start: 202401

REACTIONS (1)
  - Dry gangrene [Unknown]

NARRATIVE: CASE EVENT DATE: 20240601
